FAERS Safety Report 4523013-8 (Version None)
Quarter: 2004Q4

REPORT INFORMATION
  Report Type: 
  Country: None (occurrence: None)
  Receive Date: 20041207
  Receipt Date: 20041207
  Transmission Date: 20050328
  Serious: Yes (Hospitalization)
  Sender: FDA-Public Use
  Company Number: None

PATIENT
  Age: 66 Year
  Sex: Male
  Weight: 64.6376 kg

DRUGS (8)
  1. OXALIPLATIN   CAPECITABINE  2600  DAILY X14 DAYS [Suspect]
     Indication: HEPATIC NEOPLASM MALIGNANT
     Dosage: 130MG/M^2  INTRAVENOUS
     Route: 042
     Dates: start: 20041022, end: 20041112
  2. VELCADE [Suspect]
     Dosage: 1.00MG^M2  INTRAVENOUS
     Route: 042
     Dates: start: 20041022, end: 20041112
  3. LASIX [Concomitant]
  4. OXYCONTIN [Concomitant]
  5. OXYCODONE HCL [Concomitant]
  6. COMPAZINE [Concomitant]
  7. ALDACTONE [Concomitant]
  8. SPIRONALACTONE [Concomitant]

REACTIONS (9)
  - ABDOMINAL PAIN [None]
  - ALANINE AMINOTRANSFERASE INCREASED [None]
  - ASCITES [None]
  - ASPARTATE AMINOTRANSFERASE INCREASED [None]
  - BLOOD ALKALINE PHOSPHATASE INCREASED [None]
  - BLOOD BILIRUBIN INCREASED [None]
  - DEHYDRATION [None]
  - HYPONATRAEMIA [None]
  - PAIN [None]
